FAERS Safety Report 10769349 (Version 1)
Quarter: 2015Q1

REPORT INFORMATION
  Report Type: Report from Study
  Country: RO (occurrence: RO)
  Receive Date: 20150206
  Receipt Date: 20150206
  Transmission Date: 20150721
  Serious: Yes (Other)
  Sender: FDA-Public Use
  Company Number: RO-ABBVIE-15P-135-1339723-00

PATIENT
  Sex: Female

DRUGS (1)
  1. DUODOPA [Suspect]
     Active Substance: CARBIDOPA\LEVODOPA
     Indication: PARKINSON^S DISEASE
     Dosage: MD: 8 ML CR: 3.5 ML/H ED : 1 ML
     Route: 050
     Dates: start: 20141106

REACTIONS (8)
  - Memory impairment [Unknown]
  - Bradyphrenia [Unknown]
  - Dementia [Unknown]
  - Disorientation [Unknown]
  - Personality change [Unknown]
  - Activities of daily living impaired [Unknown]
  - Confusional state [Unknown]
  - Disturbance in attention [Unknown]

NARRATIVE: CASE EVENT DATE: 20150129
